FAERS Safety Report 8587584-7 (Version None)
Quarter: 2012Q3

REPORT INFORMATION
  Report Type: 
  Country: None (occurrence: None)
  Receive Date: 20120810
  Receipt Date: 20120802
  Transmission Date: 20120928
  Serious: Yes (Other)
  Sender: FDA-Public Use
  Company Number: CHPA2012US017500

PATIENT
  Age: 79 Year
  Sex: Female

DRUGS (2)
  1. MULTI-VITAMINS [Concomitant]
     Dosage: UNK, UNK
  2. BENEFIBER W/ WHEAT DEXTRIN [Suspect]
     Indication: CONSTIPATION
     Dosage: 3 TSP, QD
     Route: 048
     Dates: start: 20020101

REACTIONS (3)
  - THERAPEUTIC RESPONSE UNEXPECTED [None]
  - OFF LABEL USE [None]
  - HYPOTHYROIDISM [None]
